FAERS Safety Report 5089326-9 (Version None)
Quarter: 2006Q3

REPORT INFORMATION
  Report Type: 
  Country: None (occurrence: None)
  Receive Date: 20060822
  Receipt Date: 20060808
  Transmission Date: 20061208
  Serious: Yes (Death, Other)
  Sender: FDA-Public Use
  Company Number: CAN-2006-0000357

PATIENT
  Age: 41 Year
  Sex: Female

DRUGS (2)
  1. HYDROMORPHONE HCL [Suspect]
  2. DIPHENHYDRAMINE HCL [Suspect]

REACTIONS (2)
  - METASTATIC CARCINOMA OF THE BLADDER [None]
  - PNEUMONIA [None]
